FAERS Safety Report 8828691 (Version 1)
Quarter: 2012Q4

REPORT INFORMATION
  Report Type: 
  Country: CZ (occurrence: CZ)
  Receive Date: 20121008
  Receipt Date: 20121008
  Transmission Date: 20130627
  Serious: Yes (Life-Threatening, Other)
  Sender: FDA-Public Use
  Company Number: CZ-ROCHE-1141872

PATIENT
  Sex: Female

DRUGS (3)
  1. BONVIVA [Suspect]
     Indication: OSTEOPOROSIS
     Route: 048
     Dates: start: 201203, end: 201209
  2. SALOFALK [Suspect]
     Indication: DIVERTICULUM
     Route: 048
     Dates: start: 2010, end: 201209
  3. CALCICHEW [Concomitant]
     Dosage: drop out in summer 2012
     Route: 065

REACTIONS (2)
  - Burning sensation [Unknown]
  - Rash generalised [Unknown]
